FAERS Safety Report 9972742 (Version 2)
Quarter: 2014Q2

REPORT INFORMATION
  Report Type: Spontaneous
  Country: US (occurrence: US)
  Receive Date: 20140306
  Receipt Date: 20140404
  Transmission Date: 20141212
  Serious: No
  Sender: FDA-Public Use
  Company Number: US-PFIZER INC-2014058974

PATIENT
  Sex: Male

DRUGS (1)
  1. SUTENT [Suspect]
     Dosage: UNK

REACTIONS (5)
  - Change of bowel habit [Unknown]
  - Haemorrhoids [Unknown]
  - Diarrhoea [Unknown]
  - Abnormal faeces [Unknown]
  - Anorectal discomfort [Unknown]
